FAERS Safety Report 6333876-1 (Version None)
Quarter: 2009Q3

REPORT INFORMATION
  Report Type: 
  Country: None (occurrence: None)
  Receive Date: 20090829
  Receipt Date: 20090616
  Transmission Date: 20100115
  Serious: No
  Sender: FDA-Public Use
  Company Number: US-ABBOTT-09P-163-0580542-00

PATIENT
  Sex: Male
  Weight: 86.26 kg

DRUGS (6)
  1. SIMCOR [Suspect]
     Indication: BLOOD CHOLESTEROL INCREASED
     Dosage: 500/20 AT BEDTIME
     Route: 048
     Dates: start: 20090501
  2. ATENOLOL [Concomitant]
     Indication: DRUG USE FOR UNKNOWN INDICATION
  3. COSOPT [Concomitant]
     Indication: DRUG USE FOR UNKNOWN INDICATION
     Dosage: EYE GTTS
  4. PREDNISOLONE [Concomitant]
     Indication: DRUG USE FOR UNKNOWN INDICATION
     Dosage: EYE GTTS
  5. TRAVATAN [Concomitant]
     Indication: DRUG USE FOR UNKNOWN INDICATION
     Dosage: EYE GTTS
  6. ASPIRIN [Concomitant]
     Indication: DRUG USE FOR UNKNOWN INDICATION

REACTIONS (2)
  - FLUSHING [None]
  - RESTLESSNESS [None]
